FAERS Safety Report 14905474 (Version 1)
Quarter: 2018Q2

REPORT INFORMATION
  Report Type: Spontaneous
  Country: US (occurrence: US)
  Receive Date: 20180517
  Receipt Date: 20180517
  Transmission Date: 20180711
  Serious: No
  Sender: FDA-Public Use
  Company Number: US-SA-2017SA261829

PATIENT
  Sex: Male

DRUGS (3)
  1. LANTUS SOLOSTAR [Suspect]
     Active Substance: INSULIN GLARGINE
     Dosage: ALMOST UPTO 100 UNITS
     Route: 051
  2. SOLOSTAR [Suspect]
     Active Substance: DEVICE
  3. LEVEMIR [Concomitant]
     Active Substance: INSULIN DETEMIR

REACTIONS (3)
  - Injection site pain [Unknown]
  - Blood glucose increased [Unknown]
  - Device issue [Unknown]
